FAERS Safety Report 11966499 (Version 2)
Quarter: 2016Q1

REPORT INFORMATION
  Report Type: Spontaneous
  Country: FR (occurrence: FR)
  Receive Date: 20160127
  Receipt Date: 20160224
  Transmission Date: 20160526
  Serious: Yes (Hospitalization, Other)
  Sender: FDA-Public Use
  Company Number: FR-TEVA-628409ISR

PATIENT
  Age: 84 Year
  Sex: Female

DRUGS (4)
  1. FLODIL 5 MG [Suspect]
     Active Substance: FELODIPINE
     Indication: HYPERTENSION
     Dosage: 1 DOSAGE FORMS DAILY;
  2. LISINOPRIL/HYDROCHLOROTHIAZIDE 20MG/12.5MG [Suspect]
     Active Substance: HYDROCHLOROTHIAZIDE\LISINOPRIL
     Indication: HYPERTENSION
     Dosage: 1 DOSAGE FORMS DAILY; 1 DF = LISINOPRIL  20 MG + HYDROCHLOROTHIAZIDE 12.5MG
  3. UMULINE [Suspect]
     Active Substance: INSULIN HUMAN
     Indication: INSULIN-REQUIRING TYPE 2 DIABETES MELLITUS
     Dosage: 20 IU (INTERNATIONAL UNIT) DAILY;
  4. EUCREAS 50 MG/1000 MG [Suspect]
     Active Substance: METFORMIN HYDROCHLORIDE\VILDAGLIPTIN
     Indication: INSULIN-REQUIRING TYPE 2 DIABETES MELLITUS
     Dosage: 2 DOSAGE FORMS DAILY; 1 DF= VILDAGLIPTINE 50 MG + METFORMIN 1000 MG

REACTIONS (10)
  - Hyperkalaemia [Recovered/Resolved]
  - Hypothermia [Unknown]
  - Acute kidney injury [Recovered/Resolved]
  - Hypoglycaemia [Unknown]
  - Deep vein thrombosis [Unknown]
  - Sinus bradycardia [Unknown]
  - Hypotension [Unknown]
  - Lung disorder [Unknown]
  - Lactic acidosis [Recovered/Resolved]
  - Anuria [Recovered/Resolved]
